FAERS Safety Report 5081975-7 (Version None)
Quarter: 2006Q3

REPORT INFORMATION
  Report Type: 
  Country: None (occurrence: None)
  Receive Date: 20060811
  Receipt Date: 20060728
  Transmission Date: 20061208
  Serious: Yes (Other)
  Sender: FDA-Public Use
  Company Number: 02100-JPN-06-0346

PATIENT
  Age: 73 Year
  Sex: Female

DRUGS (7)
  1. CILOSTAZOL [Suspect]
     Indication: INFARCTION
     Dosage: 300 MG/150 MG ORAL
     Route: 048
     Dates: start: 20051003, end: 20060622
  2. CILOSTAZOL [Suspect]
     Indication: INFARCTION
     Dosage: 300 MG/150 MG ORAL
     Route: 048
     Dates: start: 20060623
  3. PHENYTOIN [Suspect]
     Indication: EPILEPSY
     Dosage: 200 MG/160 MG ORAL
     Route: 048
     Dates: start: 20041001, end: 20060612
  4. PHENYTOIN [Suspect]
     Indication: EPILEPSY
     Dosage: 200 MG/160 MG ORAL
     Route: 048
     Dates: start: 20060613
  5. QUETIAPINE FUMARATE [Concomitant]
  6. CLOSTRIDIUM BUTYRICUM [Concomitant]
  7. MAGNESIUM OXIDE [Concomitant]

REACTIONS (2)
  - DRUG LEVEL INCREASED [None]
  - SOMNOLENCE [None]
